FAERS Safety Report 17140700 (Version 12)
Quarter: 2020Q1

REPORT INFORMATION
  Report Type: Report from Study
  Country: KR (occurrence: KR)
  Receive Date: 20191211
  Receipt Date: 20200120
  Transmission Date: 20200409
  Serious: Yes (Death, Hospitalization)
  Sender: FDA-Public Use
  Company Number: KR-EISAI MEDICAL RESEARCH-EC-2019-065863

PATIENT
  Age: 67 Year
  Sex: Female
  Weight: 60 kg

DRUGS (10)
  1. FENTANYL CITRATE. [Concomitant]
     Active Substance: FENTANYL CITRATE
     Dates: start: 20191112, end: 20191118
  2. NAPROXEN. [Concomitant]
     Active Substance: NAPROXEN
     Dates: start: 20191015, end: 20191123
  3. LENVATINIB [Suspect]
     Active Substance: LENVATINIB
     Indication: ENDOMETRIAL CANCER
     Route: 048
     Dates: start: 20191031, end: 20191126
  4. PHAZYME [Concomitant]
     Active Substance: DIMETHICONE 410
     Dates: start: 20191119, end: 20191203
  5. GABAPENTIN. [Concomitant]
     Active Substance: GABAPENTIN
     Dates: start: 20191017, end: 20191205
  6. PEMBROLIZUMAB. [Suspect]
     Active Substance: PEMBROLIZUMAB
     Route: 041
     Dates: start: 20191120, end: 20191120
  7. MAGMIL [Concomitant]
     Active Substance: MAGNESIUM HYDROXIDE
     Dates: start: 20191031, end: 20191123
  8. PEMBROLIZUMAB. [Suspect]
     Active Substance: PEMBROLIZUMAB
     Indication: ENDOMETRIAL CANCER
     Route: 041
     Dates: start: 20191031, end: 20191031
  9. LINAGLIPTIN [Concomitant]
     Active Substance: LINAGLIPTIN
     Dates: start: 200901, end: 20191205
  10. TELMISARTAN. [Concomitant]
     Active Substance: TELMISARTAN
     Dates: start: 200901, end: 20191205

REACTIONS (3)
  - Pyrexia [Recovered/Resolved]
  - Diarrhoea [Recovered/Resolved]
  - Malignant neoplasm progression [Fatal]

NARRATIVE: CASE EVENT DATE: 20191120
